FAERS Safety Report 4424617-3 (Version None)
Quarter: 2004Q3

REPORT INFORMATION
  Report Type: 
  Country: None (occurrence: None)
  Receive Date: 20040809
  Receipt Date: 20040723
  Transmission Date: 20050211
  Serious: Yes (Hospitalization)
  Sender: FDA-Public Use
  Company Number: 192500

PATIENT
  Age: 42 Year
  Sex: Female

DRUGS (26)
  1. AVONEX [Suspect]
     Indication: MULTIPLE SCLEROSIS
     Dosage: 30 MCG QW IM
     Route: 030
     Dates: start: 19971001
  2. NEURONTIN [Concomitant]
  3. LASIX [Concomitant]
  4. KLOR-CON [Concomitant]
  5. SPIRONOLACTONE [Concomitant]
  6. COMBIVENT [Concomitant]
  7. ADVAIR DISKUS 100/50 [Concomitant]
  8. ALBUTEROL [Concomitant]
  9. ATROVENT [Concomitant]
  10. PREDNISONE [Concomitant]
  11. SINGULAIR [Concomitant]
  12. ZOCOR [Concomitant]
  13. IMDUR [Concomitant]
  14. HYZAAR [Concomitant]
  15. GLUCOPHAGE ^UNS^ [Concomitant]
  16. DIGOXIN [Concomitant]
  17. REGLAN [Concomitant]
  18. MECLIZINE [Concomitant]
  19. DARVOCET-N 100 [Concomitant]
  20. COUMADIN [Concomitant]
  21. TYLENOL [Concomitant]
  22. PEPCID [Concomitant]
  23. ONE SOURCE VITAMINS [Concomitant]
  24. DOCUSATE [Concomitant]
  25. MAGNESIUM [Concomitant]
  26. CALCIUM [Concomitant]

REACTIONS (4)
  - CHOLECYSTITIS ACUTE [None]
  - CHOLELITHIASIS [None]
  - CHRONIC OBSTRUCTIVE AIRWAYS DISEASE EXACERBATED [None]
  - URINARY TRACT INFECTION [None]
